FAERS Safety Report 10044460 (Version 6)
Quarter: 2014Q3

REPORT INFORMATION
  Report Type: Spontaneous
  Country: GB (occurrence: GB)
  Receive Date: 20140328
  Receipt Date: 20140804
  Transmission Date: 20150326
  Serious: Yes (Hospitalization)
  Sender: FDA-Public Use
  Company Number: GB-PFIZER INC-2014084574

PATIENT
  Age: 22 Year

DRUGS (4)
  1. LEVETIRACETAM. [Suspect]
     Active Substance: LEVETIRACETAM
     Dosage: 250 MG, 1X/DAY
     Route: 048
     Dates: start: 20140204
  2. METRONIDAZOLE. [Suspect]
     Active Substance: METRONIDAZOLE
     Dosage: 400 MG, 3X/DAY
     Route: 048
     Dates: start: 20140204
  3. PHENYTOIN. [Suspect]
     Active Substance: PHENYTOIN
     Dosage: 100 MG, 3X/DAY
     Route: 048
     Dates: start: 20140204
  4. CEFTRIAXONE SODIUM. [Suspect]
     Active Substance: CEFTRIAXONE SODIUM
     Dosage: 2 G, 2X/DAY
     Route: 042
     Dates: start: 20140204

REACTIONS (13)
  - Red blood cell count increased [Unknown]
  - Mean cell volume decreased [Unknown]
  - Blood urea decreased [Unknown]
  - Thrombocytopenia [Not Recovered/Not Resolved]
  - Blood albumin decreased [Unknown]
  - Neutropenia [Recovered/Resolved]
  - Haemoglobin increased [Unknown]
  - Lymphocyte count decreased [Unknown]
  - Mean cell haemoglobin decreased [Unknown]
  - Prothrombin time prolonged [Unknown]
  - C-reactive protein increased [Unknown]
  - Blood magnesium decreased [Unknown]
  - Haematocrit increased [Unknown]

NARRATIVE: CASE EVENT DATE: 20140225
